FAERS Safety Report 16349275 (Version 1)
Quarter: 2019Q2

REPORT INFORMATION
  Report Type: Spontaneous
  Country: GR (occurrence: GR)
  Receive Date: 20190523
  Receipt Date: 20190523
  Transmission Date: 20190711
  Serious: Yes (Other)
  Sender: FDA-Public Use
  Company Number: GR-MYLANLABS-2019M1048826

PATIENT
  Age: 76 Year
  Sex: Female

DRUGS (1)
  1. PROPAFENONE HCL [Suspect]
     Active Substance: PROPAFENONE HYDROCHLORIDE
     Indication: ATRIAL FIBRILLATION
     Dosage: UNK
     Dates: start: 2019, end: 2019

REACTIONS (6)
  - Malaise [Unknown]
  - Cholestasis [Recovered/Resolved]
  - Jaundice [Unknown]
  - Eosinophilia [Unknown]
  - Normochromic normocytic anaemia [Unknown]
  - Hepatotoxicity [Recovered/Resolved]

NARRATIVE: CASE EVENT DATE: 2019
